APPROVED DRUG PRODUCT: TRI-LUMA
Active Ingredient: FLUOCINOLONE ACETONIDE; HYDROQUINONE; TRETINOIN
Strength: 0.01%;4%;0.05%
Dosage Form/Route: CREAM;TOPICAL
Application: N021112 | Product #001
Applicant: GALDERMA LABORATORIES LP
Approved: Jan 18, 2002 | RLD: Yes | RS: Yes | Type: RX